FAERS Safety Report 25001238 (Version 1)
Quarter: 2025Q1

REPORT INFORMATION
  Report Type: Spontaneous
  Country: US (occurrence: US)
  Receive Date: 20250223
  Receipt Date: 20250223
  Transmission Date: 20250409
  Serious: No
  Sender: SANOFI AVENTIS
  Company Number: US-SA-2025SA050248

PATIENT
  Age: 21 Year
  Sex: Male

DRUGS (4)
  1. ALPROLIX [Suspect]
     Active Substance: EFTRENONACOG ALFA
     Indication: Factor IX deficiency
     Dosage: 4325 U, QW
     Route: 042
     Dates: start: 202405
  2. ALPROLIX [Suspect]
     Active Substance: EFTRENONACOG ALFA
     Indication: Factor IX deficiency
     Dosage: 4325 U, QW
     Route: 042
     Dates: start: 202405
  3. ALPROLIX [Suspect]
     Active Substance: EFTRENONACOG ALFA
     Route: 042
     Dates: start: 202405
  4. ALPROLIX [Suspect]
     Active Substance: EFTRENONACOG ALFA
     Route: 042
     Dates: start: 202405

REACTIONS (1)
  - Haemorrhage [Recovered/Resolved]

NARRATIVE: CASE EVENT DATE: 20250213
